FAERS Safety Report 9175678 (Version 2)
Quarter: 2014Q2

REPORT INFORMATION
  Report Type: Spontaneous
  Country: US (occurrence: US)
  Receive Date: 20130320
  Receipt Date: 20140521
  Transmission Date: 20141212
  Serious: Yes (Death, Life-Threatening)
  Sender: FDA-Public Use
  Company Number: US-JNJFOC-1999002044US

PATIENT
  Age: 49 Year
  Sex: Female

DRUGS (5)
  1. MOTRIN [Suspect]
     Route: 048
  2. MOTRIN [Suspect]
     Indication: COMPLETED SUICIDE
     Route: 048
  3. THEOPHYLLINE [Suspect]
     Indication: COMPLETED SUICIDE
     Route: 048
  4. DILTIAZEM [Suspect]
     Indication: COMPLETED SUICIDE
  5. SERTRALINE [Suspect]
     Indication: COMPLETED SUICIDE

REACTIONS (10)
  - Completed suicide [Fatal]
  - Supraventricular extrasystoles [Fatal]
  - Atrioventricular block [Fatal]
  - Hypokalaemia [Fatal]
  - Tachycardia [Fatal]
  - Vasodilation procedure [Fatal]
  - Dehydration [Fatal]
  - Hypertonia [Fatal]
  - Somnolence [Fatal]
  - Flushing [Fatal]
